FAERS Safety Report 7289603-7 (Version None)
Quarter: 2011Q1

REPORT INFORMATION
  Report Type: 
  Country: None (occurrence: None)
  Receive Date: 20110125
  Receipt Date: 20110110
  Transmission Date: 20110831
  Serious: Yes (Death)
  Sender: FDA-Public Use
  Company Number: 025515

PATIENT
  Age: 49 Year
  Sex: Female

DRUGS (5)
  1. GABAPENTIN [Suspect]
  2. VERAPAMIL [Suspect]
  3. CYCLOBENZAPRINE [Suspect]
  4. ALPRAZOLAM [Suspect]
  5. DULOXETINE [Suspect]

REACTIONS (1)
  - COMPLETED SUICIDE [None]
